FAERS Safety Report 18349787 (Version 1)
Quarter: 2020Q4

REPORT INFORMATION
  Report Type: Spontaneous
  Country: US (occurrence: US)
  Receive Date: 20201006
  Receipt Date: 20201006
  Transmission Date: 20210114
  Serious: Yes (Other)
  Sender: FDA-Public Use
  Company Number: None

PATIENT
  Age: 32 Year
  Sex: Female
  Weight: 53.55 kg

DRUGS (3)
  1. SERTRALINE [Suspect]
     Active Substance: SERTRALINE HYDROCHLORIDE
     Indication: ANXIETY
     Route: 048
  2. PROPRANOLOL [Concomitant]
     Active Substance: PROPRANOLOL HYDROCHLORIDE
     Dates: start: 20190819
  3. SERTRALINE [Suspect]
     Active Substance: SERTRALINE HYDROCHLORIDE
     Indication: OBSESSIVE THOUGHTS
     Route: 048

REACTIONS (10)
  - Anxiety [None]
  - Nausea [None]
  - Abdominal pain [None]
  - Hypersomnia [None]
  - Depression [None]
  - Tremor [None]
  - Fatigue [None]
  - Vomiting [None]
  - Diarrhoea [None]
  - Palpitations [None]

NARRATIVE: CASE EVENT DATE: 20200929
